FAERS Safety Report 24332790 (Version 3)
Quarter: 2024Q4

REPORT INFORMATION
  Report Type: Spontaneous
  Country: US (occurrence: US)
  Receive Date: 20240918
  Receipt Date: 20241223
  Transmission Date: 20250115
  Serious: No
  Sender: PFIZER
  Company Number: US-PFIZER INC-202400252166

PATIENT

DRUGS (1)
  1. NIVESTYM [Suspect]
     Active Substance: FILGRASTIM-AAFI
     Dosage: 480MCG/0.8ML (ONE SINGLE DOSE PREFILLED SYRINGE)

REACTIONS (2)
  - Product packaging quantity issue [Unknown]
  - Device malfunction [Unknown]
